FAERS Safety Report 18527027 (Version 2)
Quarter: 2020Q4

REPORT INFORMATION
  Report Type: Report from Study
  Country: US (occurrence: US)
  Receive Date: 20201120
  Receipt Date: 20201126
  Transmission Date: 20210114
  Serious: No
  Sender: FDA-Public Use
  Company Number: US-BRISTOL-MYERS SQUIBB COMPANY-BMS-2020-098769

PATIENT
  Age: 56 Year
  Sex: Male
  Weight: 97.5 kg

DRUGS (1)
  1. APIXABAN [Suspect]
     Active Substance: APIXABAN
     Indication: EMBOLISM VENOUS
     Dosage: BID
     Route: 048
     Dates: start: 20201008

REACTIONS (2)
  - Constipation [Unknown]
  - Taste disorder [Unknown]

NARRATIVE: CASE EVENT DATE: 20201008
